FAERS Safety Report 24409199 (Version 1)
Quarter: 2024Q4

REPORT INFORMATION
  Report Type: Spontaneous
  Country: FR (occurrence: FR)
  Receive Date: 20241008
  Receipt Date: 20241008
  Transmission Date: 20250114
  Serious: Yes (Other)
  Sender: NOVO NORDISK
  Company Number: FR-NOVOPROD-1284747

PATIENT
  Age: 45 Year
  Sex: Male
  Weight: 104 kg

DRUGS (2)
  1. FIASP [Suspect]
     Active Substance: INSULIN ASPART
     Dosage: UNK (DOSE INCREASED TO 20 UNITS)
  2. FIASP [Suspect]
     Active Substance: INSULIN ASPART
     Indication: Type 2 diabetes mellitus
     Dosage: UNK

REACTIONS (8)
  - Mental status changes [Recovering/Resolving]
  - Nausea [Recovering/Resolving]
  - Hyperhidrosis [Recovering/Resolving]
  - Discomfort [Recovering/Resolving]
  - Blood glucose abnormal [Recovering/Resolving]
  - Stress [Unknown]
  - Blood glucose increased [Recovering/Resolving]
  - Product quality issue [Unknown]

NARRATIVE: CASE EVENT DATE: 20240901
